FAERS Safety Report 25639394 (Version 1)
Quarter: 2025Q3

REPORT INFORMATION
  Report Type: Spontaneous
  Country: US (occurrence: US)
  Receive Date: 20250804
  Receipt Date: 20250804
  Transmission Date: 20251020
  Serious: No
  Sender: CSL BEHRING
  Company Number: US-BEH-2025214110

PATIENT
  Age: 64 Year
  Sex: Female

DRUGS (4)
  1. HIZENTRA [Suspect]
     Active Substance: HUMAN IMMUNOGLOBULIN G
     Indication: Hypogammaglobulinaemia
     Dosage: 16 G, QOW
     Route: 058
     Dates: start: 202408
  2. HIZENTRA [Suspect]
     Active Substance: HUMAN IMMUNOGLOBULIN G
     Dosage: 2 G, QOW
     Route: 058
     Dates: start: 202408
  3. HIZENTRA [Concomitant]
     Active Substance: HUMAN IMMUNOGLOBULIN G
     Route: 065
  4. HIZENTRA [Concomitant]
     Active Substance: HUMAN IMMUNOGLOBULIN G
     Route: 065

REACTIONS (2)
  - Laryngitis [Unknown]
  - Aphonia [Unknown]

NARRATIVE: CASE EVENT DATE: 20250601
